FAERS Safety Report 6622268-3 (Version None)
Quarter: 2010Q1

REPORT INFORMATION
  Report Type: 
  Country: None (occurrence: None)
  Receive Date: 20100305
  Receipt Date: 20100218
  Transmission Date: 20100710
  Serious: Yes (Other)
  Sender: FDA-Public Use
  Company Number: AMAG201000117

PATIENT
  Age: 53 Year
  Sex: Female
  Weight: 99.8 kg

DRUGS (4)
  1. FERAHEME [Suspect]
     Indication: IRON DEFICIENCY ANAEMIA
     Dosage: 510 MG, SINGLE, INTRAVENOUS; 255 MG, SINGLE, INTRAVENOUS
     Route: 042
     Dates: start: 20091103, end: 20091103
  2. FERAHEME [Suspect]
     Indication: RENAL FAILURE CHRONIC
     Dosage: 510 MG, SINGLE, INTRAVENOUS; 255 MG, SINGLE, INTRAVENOUS
     Route: 042
     Dates: start: 20091103, end: 20091103
  3. FERAHEME [Suspect]
     Indication: IRON DEFICIENCY ANAEMIA
     Dosage: 510 MG, SINGLE, INTRAVENOUS; 255 MG, SINGLE, INTRAVENOUS
     Route: 042
     Dates: start: 20091209, end: 20091209
  4. FERAHEME [Suspect]
     Indication: RENAL FAILURE CHRONIC
     Dosage: 510 MG, SINGLE, INTRAVENOUS; 255 MG, SINGLE, INTRAVENOUS
     Route: 042
     Dates: start: 20091209, end: 20091209

REACTIONS (7)
  - FOAMING AT MOUTH [None]
  - HYPERSENSITIVITY [None]
  - HYPOGLYCAEMIA [None]
  - HYPOTENSION [None]
  - MALAISE [None]
  - REFUSAL OF TREATMENT BY PATIENT [None]
  - SYNCOPE [None]
